FAERS Safety Report 13817408 (Version 2)
Quarter: 2017Q3

REPORT INFORMATION
  Report Type: Spontaneous
  Country: FR (occurrence: FR)
  Receive Date: 20170731
  Receipt Date: 20170814
  Transmission Date: 20171127
  Serious: Yes (Life-Threatening, Hospitalization)
  Sender: FDA-Public Use
  Company Number: PHHY2017FR109945

PATIENT
  Age: 60 Year
  Sex: Male

DRUGS (1)
  1. PARACETAMOL [Suspect]
     Active Substance: ACETAMINOPHEN
     Indication: PRODUCT USED FOR UNKNOWN INDICATION
     Dosage: 64 G, UNK
     Route: 065

REACTIONS (6)
  - Toxicity to various agents [Unknown]
  - Coma [Unknown]
  - Vomiting [Recovered/Resolved]
  - Analgesic drug level increased [Recovering/Resolving]
  - Lactic acidosis [Recovered/Resolved]
  - Body temperature decreased [Recovered/Resolved]
